FAERS Safety Report 5815176-9 (Version None)
Quarter: 2008Q3

REPORT INFORMATION
  Report Type: 
  Country: None (occurrence: None)
  Receive Date: 20080718
  Receipt Date: 20080709
  Transmission Date: 20090109
  Serious: Yes (Hospitalization)
  Sender: FDA-Public Use
  Company Number: FR-ROCHE-575369

PATIENT
  Sex: Male

DRUGS (2)
  1. ROCEPHIN [Suspect]
     Indication: DRUG USE FOR UNKNOWN INDICATION
     Dosage: FORM: INJECTABLE SOLUTION DRUG: ROCEPHINE 2G/40 ML
     Route: 042
     Dates: start: 20080303, end: 20080324
  2. ROCEPHIN [Suspect]
     Route: 042
     Dates: start: 20080409

REACTIONS (1)
  - CYTOLYTIC HEPATITIS [None]
